FAERS Safety Report 8225581-1 (Version None)
Quarter: 2012Q1

REPORT INFORMATION
  Report Type: 
  Country: None (occurrence: None)
  Receive Date: 20120321
  Receipt Date: 20120313
  Transmission Date: 20120608
  Serious: Yes (Other)
  Sender: FDA-Public Use
  Company Number: PHHY2012JP022226

PATIENT
  Age: 67 Year
  Sex: Female

DRUGS (2)
  1. AMOXAPINE [Suspect]
     Indication: ANXIETY
  2. ETIZOLAM [Suspect]
     Indication: ANXIETY

REACTIONS (1)
  - BLEPHAROSPASM [None]
